FAERS Safety Report 16704412 (Version 1)
Quarter: 2019Q3

REPORT INFORMATION
  Report Type: Spontaneous
  Country: US (occurrence: US)
  Receive Date: 20190814
  Receipt Date: 20190814
  Transmission Date: 20191004
  Serious: No
  Sender: FDA-Public Use
  Company Number: US-SA-2019SA216640

PATIENT
  Sex: Female

DRUGS (1)
  1. DUPIXENT [Suspect]
     Active Substance: DUPILUMAB
     Indication: ASTHMA
     Dosage: UNK
     Dates: start: 201906, end: 2019

REACTIONS (4)
  - Muscular weakness [Unknown]
  - Paraesthesia [Unknown]
  - Headache [Unknown]
  - Goitre [Unknown]

NARRATIVE: CASE EVENT DATE: 2019
